FAERS Safety Report 5503624-3 (Version None)
Quarter: 2007Q4

REPORT INFORMATION
  Report Type: 
  Country: None (occurrence: None)
  Receive Date: 20071029
  Receipt Date: 20071015
  Transmission Date: 20080405
  Serious: Yes (Other)
  Sender: FDA-Public Use
  Company Number: 20070258

PATIENT
  Age: 28 Year
  Sex: Female

DRUGS (1)
  1. VENOFER [Suspect]
     Dosage: 200 MG
     Dates: start: 20070910

REACTIONS (4)
  - ANAPHYLACTOID REACTION [None]
  - BACK PAIN [None]
  - SELF-MEDICATION [None]
  - SKIN DISCOLOURATION [None]
